FAERS Safety Report 24788115 (Version 2)
Quarter: 2025Q1

REPORT INFORMATION
  Report Type: Spontaneous
  Country: US (occurrence: US)
  Receive Date: 20241230
  Receipt Date: 20250101
  Transmission Date: 20250409
  Serious: Yes (Hospitalization, Other)
  Sender: SANOFI AVENTIS
  Company Number: US-SA-2024SA358784

PATIENT
  Age: 67 Year
  Sex: Female

DRUGS (1)
  1. DUPIXENT [Suspect]
     Active Substance: DUPILUMAB
     Indication: Dermatitis atopic
     Dosage: 300 MG, QOW
     Route: 058
     Dates: start: 20241104, end: 20241118

REACTIONS (10)
  - Pneumonia [Not Recovered/Not Resolved]
  - Non-cardiac chest pain [Not Recovered/Not Resolved]
  - Clostridium difficile infection [Unknown]
  - Illness [Not Recovered/Not Resolved]
  - Upper-airway cough syndrome [Unknown]
  - Dysphonia [Unknown]
  - Increased upper airway secretion [Not Recovered/Not Resolved]
  - Oropharyngeal pain [Unknown]
  - Scab [Unknown]
  - Skin exfoliation [Unknown]

NARRATIVE: CASE EVENT DATE: 20240101
